FAERS Safety Report 22228336 (Version 1)
Quarter: 2023Q2

REPORT INFORMATION
  Report Type: Spontaneous
  Country: US (occurrence: None)
  Receive Date: 20230418
  Receipt Date: 20230418
  Transmission Date: 20230721
  Serious: Yes (Disabling)
  Sender: FDA-Public Use
  Company Number: None

PATIENT
  Age: 25 Year
  Sex: Female
  Weight: 70.65 kg

DRUGS (7)
  1. VENLAFAXINE [Suspect]
     Active Substance: VENLAFAXINE HYDROCHLORIDE
     Indication: Anxiety
     Dosage: FREQUENCY : AT BEDTIME;?
     Route: 048
     Dates: start: 20210815, end: 20230130
  2. VENLAFAXINE [Suspect]
     Active Substance: VENLAFAXINE HYDROCHLORIDE
     Indication: Dyspnoea
  3. VENLAFAXINE [Suspect]
     Active Substance: VENLAFAXINE HYDROCHLORIDE
     Indication: Respiratory syncytial virus infection
  4. Pantoprozal [Concomitant]
  5. FISH OIL [Concomitant]
     Active Substance: FISH OIL
  6. VITAMIN D [Concomitant]
     Active Substance: VITAMIN D NOS
  7. PROBIOTICS NOS [Concomitant]
     Active Substance: PROBIOTICS NOS

REACTIONS (14)
  - Withdrawal syndrome [None]
  - Heart rate increased [None]
  - Blood glucose abnormal [None]
  - Dyspnoea [None]
  - Mood swings [None]
  - Gastrointestinal disorder [None]
  - Electric shock sensation [None]
  - Brain fog [None]
  - Fatigue [None]
  - Agitation [None]
  - Dyskinesia [None]
  - Amnesia [None]
  - Hypoaesthesia [None]
  - Product prescribing issue [None]

NARRATIVE: CASE EVENT DATE: 20230125
